FAERS Safety Report 4927924-0 (Version None)
Quarter: 2006Q1

REPORT INFORMATION
  Report Type: 
  Country: None (occurrence: None)
  Receive Date: 20060223
  Receipt Date: 20060221
  Transmission Date: 20060701
  Serious: Yes (Death)
  Sender: FDA-Public Use
  Company Number: SEWYE415421FEB06

PATIENT
  Age: 40 Year
  Sex: Female

DRUGS (9)
  1. EFFEXOR [Suspect]
     Indication: DEPRESSION
     Dosage: 150 MG 1X PER 1 DAY ORAL
     Route: 048
  2. REMERON [Suspect]
     Indication: DEPRESSION
     Dosage: 30 MG OPHTHALMIC
     Route: 047
     Dates: start: 20050507
  3. SEROQUEL [Suspect]
     Indication: PSYCHOTIC DISORDER
     Dosage: 300 + 500 MG DAILY ORAL
     Route: 048
     Dates: start: 20050511
  4. ALPRAZOLAM [Concomitant]
  5. TRIONETTA (ETHINYLESTRADIOL/LEVONORGESTREL) [Concomitant]
  6. ZOPICLONE (ZOPICLONE) [Concomitant]
  7. ALBYL-E (ACETYLSALICYLIC ACID/MAGNESIUM OXIDE) [Concomitant]
  8. VIVAL (DIAZEPAM) [Concomitant]
  9. AMLODIPINE [Concomitant]

REACTIONS (11)
  - ACUTE MYOCARDIAL INFARCTION [None]
  - ANXIETY [None]
  - BLOOD PRESSURE DIASTOLIC INCREASED [None]
  - CONVULSION [None]
  - DRUG INEFFECTIVE [None]
  - DRUG LEVEL INCREASED [None]
  - MUSCLE SPASMS [None]
  - PAIN IN EXTREMITY [None]
  - PALLOR [None]
  - VENTRICULAR FIBRILLATION [None]
  - VOMITING [None]
